FAERS Safety Report 18328903 (Version 1)
Quarter: 2020Q3

REPORT INFORMATION
  Report Type: Spontaneous
  Country: TR (occurrence: TR)
  Receive Date: 20200930
  Receipt Date: 20200930
  Transmission Date: 20201103
  Serious: Yes (Death, Other)
  Sender: FDA-Public Use
  Company Number: TR-AMGEN-TURSP2020155792

PATIENT

DRUGS (2)
  1. FILGRASTIM [Suspect]
     Active Substance: FILGRASTIM
     Indication: FEBRILE NEUTROPENIA
     Dosage: 5 MICROGRAM/KILOGRAM, QD
     Route: 058
  2. FILGRASTIM [Suspect]
     Active Substance: FILGRASTIM
     Dosage: 10 MICROGRAM/KILOGRAM, QD
     Route: 058

REACTIONS (5)
  - Death [Fatal]
  - Febrile neutropenia [Unknown]
  - Sepsis [Unknown]
  - Fungal infection [Unknown]
  - Bacterial infection [Unknown]
